FAERS Safety Report 8829829 (Version 2)
Quarter: 2012Q4

REPORT INFORMATION
  Report Type: 
  Country: US (occurrence: US)
  Receive Date: 20121008
  Receipt Date: 20121105
  Transmission Date: 20130627
  Serious: No
  Sender: FDA-Public Use
  Company Number: US-PFIZER INC-2012247810

PATIENT
  Age: 37 Year
  Sex: Male
  Weight: 74.83 kg

DRUGS (2)
  1. CHANTIX [Suspect]
     Indication: SMOKING CESSATION THERAPY
     Dosage: 0.5 mg, Daily
     Route: 048
     Dates: start: 20120927, end: 20121003
  2. CHANTIX [Suspect]
     Dosage: 1 mg, UNK
     Route: 048
     Dates: start: 20121004

REACTIONS (3)
  - Feeling jittery [Unknown]
  - Malaise [Unknown]
  - Nausea [Unknown]
